FAERS Safety Report 7245527-2 (Version None)
Quarter: 2011Q1

REPORT INFORMATION
  Report Type: 
  Country: None (occurrence: None)
  Receive Date: 20110126
  Receipt Date: 20110117
  Transmission Date: 20110831
  Serious: Yes (Life-Threatening)
  Sender: FDA-Public Use
  Company Number: CN-CELGENEUS-035-C5013-11011459

PATIENT
  Sex: Male
  Weight: 68 kg

DRUGS (7)
  1. DIGOXIN [Concomitant]
     Indication: CARDIAC DISORDER
     Route: 048
     Dates: start: 20110103, end: 20110116
  2. FAMOTIDINE [Concomitant]
     Indication: PROPHYLAXIS
     Route: 048
     Dates: start: 20101217
  3. ASPIRIN [Concomitant]
     Indication: THROMBOSIS PROPHYLAXIS
     Route: 048
     Dates: start: 20101201
  4. CEDILANID [Concomitant]
     Indication: CARDIAC DISORDER
     Route: 051
     Dates: start: 20101221, end: 20110103
  5. CC-5013 [Suspect]
     Indication: MULTIPLE MYELOMA
     Route: 048
     Dates: start: 20101217, end: 20110106
  6. DEXAMETHASONE [Suspect]
     Indication: MULTIPLE MYELOMA
     Route: 065
     Dates: start: 20101212, end: 20110107
  7. FUROSEMIDE [Concomitant]
     Route: 051
     Dates: start: 20101221, end: 20110116

REACTIONS (1)
  - CONVULSION [None]
